FAERS Safety Report 4698559-2 (Version None)
Quarter: 2005Q2

REPORT INFORMATION
  Report Type: 
  Country: None (occurrence: None)
  Receive Date: 20050622
  Receipt Date: 20050609
  Transmission Date: 20051028
  Serious: No
  Sender: FDA-Public Use
  Company Number: 215205

PATIENT
  Age: 10 Year
  Sex: Male
  Weight: 23.9 kg

DRUGS (7)
  1. NUTROPIN AQ [Suspect]
     Indication: BODY HEIGHT BELOW NORMAL
     Dosage: 0.6 MG, BID, SUBCUTANEOUS
     Route: 058
     Dates: start: 20050412, end: 20050603
  2. AMOXICILLIN [Concomitant]
  3. ASPIRIN [Concomitant]
  4. DIGOXIN [Concomitant]
  5. ENALAPRIL MALEATE [Concomitant]
  6. LASIX [Concomitant]
  7. PREDNISONE (PERDNISONE) [Concomitant]

REACTIONS (2)
  - DISEASE RECURRENCE [None]
  - PROTEIN-LOSING GASTROENTEROPATHY [None]
